FAERS Safety Report 11071211 (Version 1)
Quarter: 2015Q2

REPORT INFORMATION
  Report Type: Report from Study
  Country: ZA (occurrence: ZA)
  Receive Date: 20150428
  Receipt Date: 20150428
  Transmission Date: 20150821
  Serious: Yes (Hospitalization)
  Sender: FDA-Public Use
  Company Number: ZA-ROCHE-1568618

PATIENT
  Sex: Male

DRUGS (1)
  1. MIRCERA [Suspect]
     Active Substance: METHOXY POLYETHYLENE GLYCOL-EPOETIN BETA
     Indication: NEPHROGENIC ANAEMIA
     Dosage: 250UG 1X/MONTH
     Route: 058
     Dates: start: 20150309

REACTIONS (3)
  - Fall [Unknown]
  - Haemarthrosis [Not Recovered/Not Resolved]
  - Haemoglobin decreased [Recovering/Resolving]
